FAERS Safety Report 5604582-3 (Version None)
Quarter: 2008Q1

REPORT INFORMATION
  Report Type: 
  Country: None (occurrence: None)
  Receive Date: 20080128
  Receipt Date: 20070309
  Transmission Date: 20080703
  Serious: Yes (Other)
  Sender: FDA-Public Use
  Company Number: FR-ASTRAZENECA-2007CG00331

PATIENT
  Age: 3150 Day
  Sex: Male

DRUGS (1)
  1. XYLOCAINE [Suspect]
     Indication: LOCAL ANAESTHESIA
     Route: 045
     Dates: start: 20070117, end: 20070117

REACTIONS (2)
  - HYPERSENSITIVITY [None]
  - MALAISE [None]
